FAERS Safety Report 4920364-X (Version None)
Quarter: 2006Q1

REPORT INFORMATION
  Report Type: 
  Country: None (occurrence: None)
  Receive Date: 20060223
  Receipt Date: 20050919
  Transmission Date: 20060701
  Serious: Yes (Hospitalization)
  Sender: FDA-Public Use
  Company Number: US-MERCK-0509USA02876

PATIENT
  Age: 76 Year
  Sex: Female
  Weight: 74 kg

DRUGS (11)
  1. VIOXX [Suspect]
     Indication: ARTHRITIS
     Route: 048
     Dates: start: 20010601, end: 20020807
  2. BEXTRA [Concomitant]
     Route: 065
  3. CELEBREX [Concomitant]
     Route: 065
  4. ALBUTEROL [Concomitant]
     Route: 065
  5. ASPIRIN [Concomitant]
     Route: 065
  6. COMBIVENT [Concomitant]
     Route: 065
  7. EVISTA [Concomitant]
     Route: 065
  8. INDERAL [Concomitant]
     Route: 065
  9. LIPITOR [Concomitant]
     Route: 065
  10. METROGEL [Concomitant]
     Route: 065
  11. TYLENOL [Concomitant]
     Route: 065

REACTIONS (15)
  - ATRIAL FIBRILLATION [None]
  - BALANCE DISORDER [None]
  - CARDIAC FAILURE [None]
  - CEREBROVASCULAR ACCIDENT [None]
  - CHEST PAIN [None]
  - FALL [None]
  - GASTROOESOPHAGEAL REFLUX DISEASE [None]
  - HEPATOCELLULAR DAMAGE [None]
  - INJURY [None]
  - MYOCARDIAL INFARCTION [None]
  - RENAL DISORDER [None]
  - SKIN INJURY [None]
  - THROMBOSIS [None]
  - ULCER [None]
  - VOMITING [None]
